FAERS Safety Report 10072097 (Version 1)
Quarter: 2014Q2

REPORT INFORMATION
  Report Type: Spontaneous
  Country: DE (occurrence: None)
  Receive Date: 20140409
  Receipt Date: 20140409
  Transmission Date: 20141212
  Serious: Yes (Other)
  Sender: FDA-Public Use
  Company Number: 2014-19326

PATIENT
  Age: 92 Year
  Sex: Female

DRUGS (1)
  1. EYELEA (AFLIBERCEPT) INJECTION [Suspect]
     Indication: AGE-RELATED MACULAR DEGENERATION
     Dosage: 3 INJECTIONS IN RIGHT EYE
     Dates: start: 201401

REACTIONS (5)
  - Retinal cyst [None]
  - Eye pruritus [None]
  - Eye irritation [None]
  - Eye pain [None]
  - Foreign body sensation in eyes [None]
